FAERS Safety Report 23904135 (Version 2)
Quarter: 2024Q3

REPORT INFORMATION
  Report Type: Spontaneous
  Country: US (occurrence: None)
  Receive Date: 20240527
  Receipt Date: 20240802
  Transmission Date: 20241017
  Serious: No
  Sender: ASTRAZENECA
  Company Number: 2024A115028

PATIENT
  Sex: Male

DRUGS (1)
  1. BYDUREON BCISE [Suspect]
     Active Substance: EXENATIDE

REACTIONS (8)
  - Nausea [Unknown]
  - Dyspnoea [Unknown]
  - Injection site haemorrhage [Unknown]
  - Injection site pruritus [Recovered/Resolved]
  - Injection site nodule [Unknown]
  - Fatigue [Unknown]
  - Asthenia [Unknown]
  - Product dose omission issue [Unknown]
